FAERS Safety Report 17830487 (Version 1)
Quarter: 2020Q2

REPORT INFORMATION
  Report Type: Spontaneous
  Country: FR (occurrence: FR)
  Receive Date: 20200527
  Receipt Date: 20200527
  Transmission Date: 20200714
  Serious: Yes (Death)
  Sender: FDA-Public Use
  Company Number: FR-CHIESI USA, INC.-FR-2020CHI000336

PATIENT

DRUGS (4)
  1. CANGRELOR [Suspect]
     Active Substance: CANGRELOR
     Indication: OFF LABEL USE
     Dosage: 4 UNK
     Route: 042
  2. CANGRELOR [Suspect]
     Active Substance: CANGRELOR
     Indication: INTRACRANIAL ANEURYSM
     Dosage: 30 ?G/KG
     Route: 040
  3. TICAGRELOR. [Suspect]
     Active Substance: TICAGRELOR
     Indication: INTRACRANIAL ANEURYSM
     Dosage: 90 MG, BID
     Route: 065
  4. ASPIRIN                            /00002701/ [Concomitant]
     Active Substance: ASPIRIN
     Indication: INTRACRANIAL ANEURYSM
     Dosage: 250 MG, UNK (30 MINUTES BEFORE THE STENT DEPLOYMENT)
     Route: 040

REACTIONS (3)
  - Haemorrhage [Fatal]
  - Intentional product use issue [Recovered/Resolved]
  - Off label use [Recovered/Resolved]
